FAERS Safety Report 18932635 (Version 2)
Quarter: 2021Q1

REPORT INFORMATION
  Report Type: Spontaneous
  Country: CO (occurrence: CO)
  Receive Date: 20210224
  Receipt Date: 20210324
  Transmission Date: 20210420
  Serious: Yes (Other)
  Sender: FDA-Public Use
  Company Number: CO-PFIZER INC-2021142432

PATIENT
  Age: 3 Year
  Sex: Female

DRUGS (2)
  1. GENOTROPIN [Suspect]
     Active Substance: SOMATROPIN
     Dosage: 0.6 MG, UNSPECIFED FREQUENCY
     Route: 058
     Dates: start: 201911
  2. GENOTROPIN [Suspect]
     Active Substance: SOMATROPIN
     Indication: TURNER^S SYNDROME
     Dosage: 0.4 MG, UNSPECIFED FREQUENCY
     Route: 058
     Dates: start: 201911

REACTIONS (3)
  - Cerebral disorder [Unknown]
  - Glioma [Unknown]
  - Fall [Unknown]

NARRATIVE: CASE EVENT DATE: 202101
